FAERS Safety Report 9443811 (Version 3)
Quarter: 2013Q4

REPORT INFORMATION
  Report Type: Report from Study
  Country: US (occurrence: US)
  Receive Date: 20130806
  Receipt Date: 20131223
  Transmission Date: 20140711
  Serious: Yes (Death, Hospitalization, Other)
  Sender: FDA-Public Use
  Company Number: US-ROCHE-1255707

PATIENT
  Age: 65 Year
  Sex: Male

DRUGS (6)
  1. MYCOPHENOLATE MOFETIL [Suspect]
     Indication: RENAL TRANSPLANT
     Route: 065
     Dates: start: 20070419
  2. BELATACEPT [Suspect]
     Indication: RENAL TRANSPLANT
     Route: 065
     Dates: start: 20061007
  3. ASPIRIN [Concomitant]
     Route: 065
     Dates: start: 20061011
  4. ATORVASTAN [Concomitant]
     Route: 065
     Dates: start: 20120716
  5. VANCOMYCINE [Concomitant]
  6. MEROPENEM [Concomitant]

REACTIONS (8)
  - Haemorrhage [Fatal]
  - Arrhythmia [Fatal]
  - Cerebrovascular disorder [Not Recovered/Not Resolved]
  - Atrial fibrillation [Not Recovered/Not Resolved]
  - Sepsis [Not Recovered/Not Resolved]
  - Cardiac failure congestive [Not Recovered/Not Resolved]
  - Haematoma [Not Recovered/Not Resolved]
  - Liver function test abnormal [Not Recovered/Not Resolved]
